FAERS Safety Report 7277967-X (Version None)
Quarter: 2011Q1

REPORT INFORMATION
  Report Type: 
  Country: None (occurrence: None)
  Receive Date: 20110207
  Receipt Date: 20110128
  Transmission Date: 20110831
  Serious: Yes (Death, Other)
  Sender: FDA-Public Use
  Company Number: ES-ROCHE-756578

PATIENT

DRUGS (1)
  1. OSELTAMIVIR [Suspect]
     Indication: H1N1 INFLUENZA
     Route: 065

REACTIONS (12)
  - HEPATITIS ACUTE [None]
  - PNEUMONIA [None]
  - PLEURAL EFFUSION [None]
  - BACTERIAL INFECTION [None]
  - DIABETIC KETOACIDOSIS [None]
  - RESPIRATORY FAILURE [None]
  - DEEP VEIN THROMBOSIS [None]
  - RENAL FAILURE ACUTE [None]
  - DEATH [None]
  - CARDIOVASCULAR DISORDER [None]
  - HEPATIC ENCEPHALOPATHY [None]
  - SHOCK [None]
